FAERS Safety Report 12665184 (Version 1)
Quarter: 2016Q3

REPORT INFORMATION
  Report Type: Spontaneous
  Country: US (occurrence: US)
  Receive Date: 20160818
  Receipt Date: 20160818
  Transmission Date: 20161109
  Serious: No
  Sender: FDA-Public Use
  Company Number: US-FRI-1000082427

PATIENT
  Sex: Female

DRUGS (1)
  1. CELEXA [Suspect]
     Active Substance: CITALOPRAM HYDROBROMIDE
     Indication: PAIN IN EXTREMITY

REACTIONS (2)
  - Feeling abnormal [Unknown]
  - Off label use [Recovered/Resolved]
